FAERS Safety Report 13349720 (Version 1)
Quarter: 2017Q1

REPORT INFORMATION
  Report Type: Spontaneous
  Country: US (occurrence: US)
  Receive Date: 20170318
  Receipt Date: 20170318
  Transmission Date: 20170429
  Serious: Yes (Other)
  Sender: FDA-Public Use
  Company Number: None

PATIENT
  Age: 43 Year
  Sex: Female
  Weight: 72 kg

DRUGS (14)
  1. MENOPUR [Suspect]
     Active Substance: FOLLITROPIN\LUTEINIZING HORMONE
     Indication: INFERTILITY
     Dosage: ?          QUANTITY:3 INJECTION(S);OTHER FREQUENCY:EVERY OTHER DAY;OTHER ROUTE:SUBCUTANEOUS BELLY?
     Route: 058
  2. LEVOTHYROXINE. [Concomitant]
     Active Substance: LEVOTHYROXINE
  3. MYO INOSITOL [Concomitant]
  4. VITAMIN D [Concomitant]
     Active Substance: CHOLECALCIFEROL
  5. MINERAL COMPLEX [Concomitant]
  6. L-ARGININE [Concomitant]
     Active Substance: ARGININE
  7. ACAI [Concomitant]
  8. PRENATAL VITAMINS [Concomitant]
     Active Substance: VITAMINS
  9. VITAMIN C [Concomitant]
     Active Substance: ASCORBIC ACID
  10. VITAMIN E [Concomitant]
     Active Substance: .ALPHA.-TOCOPHEROL
  11. MACA [Concomitant]
  12. WEST WHEAT GRASS [Concomitant]
     Active Substance: PASCOPYRUM SMITHII POLLEN
  13. VITAMIN B COMPLEX [Concomitant]
     Active Substance: CYANOCOBALAMIN\DEXPANTHENOL\NIACINAMIDE\PYRIDOXINE HYDROCHLORIDE\RIBOFLAVIN 5^-PHOSPHATE SODIUM\THIAMINE HYDROCHLORIDE\VITAMIN B COMPLEX
  14. COQ10 [Concomitant]
     Active Substance: UBIDECARENONE

REACTIONS (3)
  - Blood thyroid stimulating hormone increased [None]
  - Blood alkaline phosphatase decreased [None]
  - Blood oestrogen decreased [None]

NARRATIVE: CASE EVENT DATE: 20170316
